FAERS Safety Report 5822124-4 (Version None)
Quarter: 2008Q3

REPORT INFORMATION
  Report Type: 
  Country: None (occurrence: None)
  Receive Date: 20080725
  Receipt Date: 20080714
  Transmission Date: 20090109
  Serious: Yes (Hospitalization)
  Sender: FDA-Public Use
  Company Number: JP-JNJFOC-20080700280

PATIENT
  Sex: Male
  Weight: 60 kg

DRUGS (16)
  1. RISPERDAL [Suspect]
     Indication: SCHIZOPHRENIA
     Dosage: 2-4MG/DAY
     Route: 048
  2. RISPERDAL [Suspect]
     Route: 048
  3. RISPERDAL [Suspect]
     Route: 048
  4. RISPERDAL [Suspect]
     Route: 048
  5. RISPERDAL [Suspect]
     Route: 048
  6. NEOPERIDOL [Suspect]
     Route: 030
  7. NEOPERIDOL [Suspect]
     Route: 030
  8. NEOPERIDOL [Suspect]
     Indication: SCHIZOPHRENIA
     Route: 030
  9. OLANZAPINE [Concomitant]
     Indication: DRUG USE FOR UNKNOWN INDICATION
  10. AKINETON [Concomitant]
     Indication: SCHIZOPHRENIA
     Route: 048
  11. NITRAZEPAM [Concomitant]
     Indication: SCHIZOPHRENIA
     Route: 048
  12. ROHYPNOL [Concomitant]
     Route: 048
  13. ROHYPNOL [Concomitant]
     Indication: SCHIZOPHRENIA
     Route: 048
  14. LEVOTOMIN [Concomitant]
     Indication: SCHIZOPHRENIA
     Route: 048
  15. CHLORPROMAZINE HCL [Concomitant]
     Indication: DRUG USE FOR UNKNOWN INDICATION
     Route: 048
  16. AKINETON [Concomitant]
     Route: 048

REACTIONS (6)
  - AKATHISIA [None]
  - ANXIETY [None]
  - EJACULATION DISORDER [None]
  - HYPERPROLACTINAEMIA [None]
  - IRRITABILITY [None]
  - TREATMENT NONCOMPLIANCE [None]
